FAERS Safety Report 4677802-X (Version None)
Quarter: 2005Q2

REPORT INFORMATION
  Report Type: 
  Country: None (occurrence: None)
  Receive Date: 20050531
  Receipt Date: 20050518
  Transmission Date: 20051028
  Serious: Yes (Other)
  Sender: FDA-Public Use
  Company Number: NL-JNJFOC-20050504672

PATIENT
  Sex: Male

DRUGS (1)
  1. DAKTARIN [Suspect]
     Route: 049
     Dates: start: 20050419, end: 20050427

REACTIONS (3)
  - CONFUSIONAL STATE [None]
  - DELUSION [None]
  - PANIC REACTION [None]
